FAERS Safety Report 16489580 (Version 1)
Quarter: 2019Q2

REPORT INFORMATION
  Report Type: Spontaneous
  Country: US (occurrence: US)
  Receive Date: 20190628
  Receipt Date: 20190628
  Transmission Date: 20190711
  Serious: No
  Sender: FDA-Public Use
  Company Number: US-ACCORD-069738

PATIENT
  Age: 25 Year
  Sex: Female

DRUGS (1)
  1. CLONAZEPAM ACCORD [Suspect]
     Active Substance: CLONAZEPAM
     Indication: ANXIETY
     Dates: start: 20180614

REACTIONS (4)
  - Nervousness [Unknown]
  - Drug ineffective [Unknown]
  - Palpitations [Unknown]
  - Product substitution issue [Unknown]
